FAERS Safety Report 7368743-8 (Version None)
Quarter: 2011Q1

REPORT INFORMATION
  Report Type: 
  Country: None (occurrence: None)
  Receive Date: 20110304
  Receipt Date: 20110304
  Transmission Date: 20110831
  Serious: Yes (Disabling)
  Sender: FDA-Public Use
  Company Number: 2011SP009107

PATIENT
  Age: 2 Year
  Sex: Male
  Weight: 13.6 kg

DRUGS (2)
  1. ALBUTEROL [Concomitant]
  2. DULERA TABLET [Suspect]
     Indication: PRODUCT USED FOR UNKNOWN INDICATION
     Dosage: 100 MG, QD, INH
     Route: 055
     Dates: start: 20110104, end: 20110214

REACTIONS (4)
  - BITE [None]
  - CRYING [None]
  - AGGRESSION [None]
  - ABNORMAL BEHAVIOUR [None]
